FAERS Safety Report 4500603-X (Version None)
Quarter: 2004Q4

REPORT INFORMATION
  Report Type: 
  Country: None (occurrence: None)
  Receive Date: 20041115
  Receipt Date: 20041109
  Transmission Date: 20050328
  Serious: Yes (Death)
  Sender: FDA-Public Use
  Company Number: US-JNJFOC-20041003497

PATIENT
  Age: 68 Year
  Sex: Male

DRUGS (4)
  1. DURAGESIC [Suspect]
     Route: 062
     Dates: end: 20040927
  2. DURAGESIC [Suspect]
     Route: 062
     Dates: end: 20040927
  3. DURAGESIC [Suspect]
     Indication: CANCER PAIN
     Route: 062
     Dates: end: 20040927
  4. OXY IR [Concomitant]
     Indication: PAIN
     Dosage: EVERY 1 TO 2 HOURS PRN
     Route: 049
     Dates: start: 20040913, end: 20040927

REACTIONS (1)
  - PANCREATIC CARCINOMA [None]
